FAERS Safety Report 7222233-1 (Version None)
Quarter: 2011Q1

REPORT INFORMATION
  Report Type: 
  Country: None (occurrence: None)
  Receive Date: 20110112
  Receipt Date: 20110107
  Transmission Date: 20110831
  Serious: Yes (Hospitalization)
  Sender: FDA-Public Use
  Company Number: US-TEVA-262585USA

PATIENT
  Age: 56 Year
  Sex: Female
  Weight: 103.1 kg

DRUGS (8)
  1. FLUOROURACIL [Suspect]
     Indication: COLON CANCER
     Dosage: 400MG/M2
     Route: 042
     Dates: start: 20101116, end: 20101129
  2. CELECOXIB [Suspect]
     Indication: COLON CANCER
     Dates: start: 20101116, end: 20101210
  3. FLUOROURACIL [Suspect]
     Dosage: 2400 MG/M2
     Dates: start: 20101116, end: 20101129
  4. ACETYLSALICYLIC ACID [Concomitant]
  5. WARFARIN SODIUM [Concomitant]
  6. FOLINIC ACID [Suspect]
     Dosage: 400 MG/M2
     Route: 042
     Dates: start: 20101116, end: 20101129
  7. OXALIPLATIN [Suspect]
     Indication: COLON CANCER
     Dosage: 85 MG/M2
     Route: 042
     Dates: start: 20101116, end: 20101129
  8. ATENOLOL [Concomitant]

REACTIONS (5)
  - ASTHENIA [None]
  - SOFT TISSUE INFECTION [None]
  - CHEST DISCOMFORT [None]
  - SUPRAVENTRICULAR TACHYCARDIA [None]
  - PALPITATIONS [None]
